FAERS Safety Report 19257479 (Version 1)
Quarter: 2021Q2

REPORT INFORMATION
  Report Type: Spontaneous
  Country: RU (occurrence: RU)
  Receive Date: 20210514
  Receipt Date: 20210514
  Transmission Date: 20210717
  Serious: Yes (Other)
  Sender: FDA-Public Use
  Company Number: NVSC2021RU102982

PATIENT
  Age: 38 Year
  Sex: Female

DRUGS (2)
  1. LIDOCAINE. [Concomitant]
     Active Substance: LIDOCAINE
     Indication: VEHICLE SOLUTION USE
     Dosage: UNK (20 MG/ML; ONE TIME DOSE OF 2 ML)
     Route: 065
     Dates: end: 20210426
  2. LENDACIN [Suspect]
     Active Substance: CEFTRIAXONE SODIUM
     Indication: SINUSITIS
     Dosage: UNK
     Route: 065
     Dates: end: 20210426

REACTIONS (1)
  - Angioedema [Recovering/Resolving]

NARRATIVE: CASE EVENT DATE: 20210426
